FAERS Safety Report 23544966 (Version 3)
Quarter: 2024Q2

REPORT INFORMATION
  Report Type: Report from Study
  Country: US (occurrence: US)
  Receive Date: 20240220
  Receipt Date: 20240520
  Transmission Date: 20240716
  Serious: Yes (Hospitalization)
  Sender: FDA-Public Use
  Company Number: US-PFIZER INC-202400043108

PATIENT
  Age: 75 Year
  Sex: Male
  Weight: 56.689 kg

DRUGS (20)
  1. VYNDAMAX [Suspect]
     Active Substance: TAFAMIDIS
     Indication: Amyloidosis
     Dosage: 61 MG TAKE 1 CAPSULE BY MOUTH EVERY DAY
     Route: 048
     Dates: start: 202401
  2. VYNDAMAX [Suspect]
     Active Substance: TAFAMIDIS
     Dosage: TAKE 1 CAPSULE ONCE DAILY
     Route: 048
  3. VITAMIN D3 [Concomitant]
     Active Substance: CHOLECALCIFEROL
     Dosage: (LIQUID)
  4. AMIODARONE HYDROCHLORIDE [Concomitant]
     Active Substance: AMIODARONE HYDROCHLORIDE
     Dosage: (SOLUTION 900 MG/18)
  5. BUMETANIDE [Concomitant]
     Active Substance: BUMETANIDE
  6. CELLCEPT [Concomitant]
     Active Substance: MYCOPHENOLATE MOFETIL
     Dosage: UNK
  7. CLOBETASOL [Concomitant]
     Active Substance: CLOBETASOL
     Dosage: (1 POWDER)
  8. CLOTRIMAZOLE [Concomitant]
     Active Substance: CLOTRIMAZOLE
     Dosage: (POWDER)
  9. ELIQUIS [Concomitant]
     Active Substance: APIXABAN
     Dosage: UNK
  10. FLUOCINONIDE [Concomitant]
     Active Substance: FLUOCINONIDE
     Dosage: UNK
  11. FLUTICASONE [Concomitant]
     Active Substance: FLUTICASONE
     Dosage: (POWDER)
  12. JARDIANCE [Concomitant]
     Active Substance: EMPAGLIFLOZIN
     Dosage: UNK
  13. LIDOCAINE [Concomitant]
     Active Substance: LIDOCAINE
  14. PREDNISONE [Concomitant]
     Active Substance: PREDNISONE
     Dosage: (POWDER)
  15. SERTRALINE HYDROCHLORIDE [Concomitant]
     Active Substance: SERTRALINE HYDROCHLORIDE
     Dosage: (POWDER)
  16. SIMVASTATIN [Concomitant]
     Active Substance: SIMVASTATIN
  17. TACROLIMUS [Concomitant]
     Active Substance: TACROLIMUS
     Dosage: (POWDER)
  18. TRIAMCINOLONE [Concomitant]
     Active Substance: TRIAMCINOLONE
     Dosage: (POWDER)
  19. CHOLECALCIFEROL [Concomitant]
     Active Substance: CHOLECALCIFEROL
     Dosage: UNK
  20. VITAMIN E [Concomitant]
     Active Substance: .ALPHA.-TOCOPHEROL
     Dosage: UNK

REACTIONS (13)
  - Dyspnoea [Unknown]
  - Asthenia [Unknown]
  - Decreased appetite [Unknown]
  - Fluid retention [Unknown]
  - Hypertension [Unknown]
  - Rhinorrhoea [Not Recovered/Not Resolved]
  - Weight abnormal [Unknown]
  - Rash macular [Unknown]
  - Fungal foot infection [Unknown]
  - Fungal infection [Unknown]
  - Vertigo [Unknown]
  - Mobility decreased [Unknown]
  - Thinking abnormal [Unknown]

NARRATIVE: CASE EVENT DATE: 20240401
